FAERS Safety Report 12293148 (Version 1)
Quarter: 2016Q2

REPORT INFORMATION
  Report Type: Report from Study
  Country: US (occurrence: US)
  Receive Date: 20160421
  Receipt Date: 20160421
  Transmission Date: 20160815
  Serious: No
  Sender: FDA-Public Use
  Company Number: US-AMGEN-USASL2016029878

PATIENT
  Age: 73 Year
  Sex: Female

DRUGS (1)
  1. REPATHA [Suspect]
     Active Substance: EVOLOCUMAB
     Indication: PRODUCT USED FOR UNKNOWN INDICATION
     Dosage: 140 MG, Q2WK
     Route: 065
     Dates: start: 20160308

REACTIONS (12)
  - Device failure [Unknown]
  - Fatigue [Unknown]
  - Emotional disorder [Unknown]
  - Arthritis [Unknown]
  - Hot flush [Unknown]
  - Paraesthesia [Unknown]
  - Dry mouth [Unknown]
  - Arthralgia [Unknown]
  - Sleep disorder [Unknown]
  - Back pain [Unknown]
  - Depression [Unknown]
  - Muscle spasms [Unknown]
